FAERS Safety Report 8781571 (Version 2)
Quarter: 2015Q3

REPORT INFORMATION
  Report Type: Spontaneous
  Country: US (occurrence: US)
  Receive Date: 20120913
  Receipt Date: 20150925
  Transmission Date: 20151125
  Serious: Yes (Hospitalization, Other)
  Sender: FDA-Public Use
  Company Number: US-009507513-1209USA001504

PATIENT
  Sex: Female

DRUGS (4)
  1. ALENDRONATE SODIUM. [Suspect]
     Active Substance: ALENDRONATE SODIUM
     Indication: BONE DENSITY DECREASED
     Dosage: 70 MG, UNK
     Route: 048
     Dates: start: 20080529, end: 20100308
  2. FOSAMAX [Suspect]
     Active Substance: ALENDRONATE SODIUM
     Indication: BONE DENSITY DECREASED
     Dosage: 70 MG, QW
     Route: 048
     Dates: start: 2005, end: 2008
  3. CALCIUM CARBONATE (+) VITAMIN D (UNSPECIFIED) [Concomitant]
     Active Substance: CALCIUM CARBONATE\VITAMIN D
     Dosage: UNK
     Route: 048
     Dates: start: 1990
  4. ALENDRONATE SODIUM. [Suspect]
     Active Substance: ALENDRONATE SODIUM
     Indication: BONE DENSITY DECREASED
     Dosage: 70 MG, QW
     Route: 048
     Dates: start: 20100506, end: 20101011

REACTIONS (16)
  - Rheumatoid arthritis [Unknown]
  - Asthma [Unknown]
  - Femur fracture [Recovering/Resolving]
  - Anxiety [Unknown]
  - Fall [Unknown]
  - Foot fracture [Unknown]
  - Impaired healing [Recovering/Resolving]
  - Hypercholesterolaemia [Unknown]
  - Dental operation [Unknown]
  - Chest pain [Unknown]
  - Arthritis [Unknown]
  - Tonsillar hypertrophy [Unknown]
  - Femur fracture [Recovering/Resolving]
  - Hysterectomy [Unknown]
  - Anaemia [Unknown]
  - Depression [Unknown]

NARRATIVE: CASE EVENT DATE: 2006
